FAERS Safety Report 15673808 (Version 2)
Quarter: 2019Q2

REPORT INFORMATION
  Report Type: Spontaneous
  Country: US (occurrence: US)
  Receive Date: 20181129
  Receipt Date: 20190620
  Transmission Date: 20190711
  Serious: Yes (Hospitalization)
  Sender: FDA-Public Use
  Company Number: US-PFIZER INC-2016143579

PATIENT
  Age: 77 Year
  Sex: Male

DRUGS (29)
  1. VITAMIN B12 [Concomitant]
     Active Substance: CYANOCOBALAMIN
     Dosage: 1000 UG, DAILY (TAKE 1000 MCG BY MOUTH DAILY)
     Route: 048
  2. PROVENTIL HFA [SALBUTAMOL] [Concomitant]
     Indication: WHEEZING
     Dosage: UNK, AS NEEDED (INHALE 1-2 PUFFS INTO THE LUNG EVERY 6 HOURS AS NEEDED)
     Route: 055
  3. NOVOLOG [Concomitant]
     Active Substance: INSULIN ASPART
     Indication: DIABETIC NEUROPATHY
     Dosage: 76.65 IU, DAILY (USE VIA INSULIN PUMP AVERAGE DAILY INSULIN IS 76.65 UNITS)
     Route: 042
  4. MEVACOR [Concomitant]
     Active Substance: LOVASTATIN
     Dosage: 20 MG, DAILY
     Route: 048
  5. PREDNISONE. [Concomitant]
     Active Substance: PREDNISONE
     Dosage: UNK
  6. CARDIZEM [Concomitant]
     Active Substance: DILTIAZEM HYDROCHLORIDE
     Dosage: 120 MG, 3X/DAY (TAKE 1 TABLET BY MOUTH 3 TIMES A DAY)
     Route: 048
  7. LYRICA [Suspect]
     Active Substance: PREGABALIN
     Dosage: 50 MG, 2X/DAY (TAKE 1 CAPSULE BY MOUTH 2 TIMES A DAY, MAX DAILY 100 MG)
     Route: 048
     Dates: start: 20160708
  8. DILACOR XR [Concomitant]
     Active Substance: DILTIAZEM HYDROCHLORIDE
     Dosage: UNK
  9. VITAMIN D3 [Concomitant]
     Active Substance: CHOLECALCIFEROL
     Dosage: 1000 IU, DAILY
     Route: 048
  10. LYRICA [Suspect]
     Active Substance: PREGABALIN
     Dosage: 50 MG, 2X/DAY (TAKE 1 CAPSULE BY MOUTH 2 TIMES A DAY, MAX DAILY 100 MG)
     Route: 048
     Dates: start: 20170914
  11. VITAMIN D [Concomitant]
     Active Substance: VITAMIN D NOS
     Dosage: UNK
  12. PROSCAR [Concomitant]
     Active Substance: FINASTERIDE
     Dosage: 5 MG, DAILY (TAKE 1 TABLET)
     Route: 048
  13. ADVAIR HFA [Concomitant]
     Active Substance: FLUTICASONE PROPIONATE\SALMETEROL XINAFOATE
     Dosage: UNK
  14. THEO-DUR [Concomitant]
     Active Substance: THEOPHYLLINE ANHYDROUS
     Dosage: UNK
  15. XOPENEX [Concomitant]
     Active Substance: LEVALBUTEROL HYDROCHLORIDE
     Dosage: 0.63 MG, 4X/DAY (TAKE 0.63 MG BY NEBULIZATION EVERY 6 HOURS)
     Route: 045
  16. LASIX [Concomitant]
     Active Substance: FUROSEMIDE
     Dosage: 40 MG, DAILY
     Route: 048
  17. LYRICA [Suspect]
     Active Substance: PREGABALIN
     Dosage: 50 MG, 2X/DAY (TAKE 1 CAPSULE BY MOUTH 2 TIMES A DAY, MAX DAILY 100 MG)
     Route: 048
     Dates: start: 20170605, end: 2017
  18. SYNTHROID [Concomitant]
     Active Substance: LEVOTHYROXINE SODIUM
     Dosage: 88 UG, DAILY (TAKE 1 TABLET)
     Route: 048
  19. VENTOLIN HFA [Concomitant]
     Active Substance: ALBUTEROL SULFATE
     Dosage: UNK UNK, AS NEEDED (INHALE 1-2 PUFFS INTO THE LUNG EVERY 6 HOURS AS NEEDED)
     Route: 055
  20. ALBUTEROL SULFATE. [Concomitant]
     Active Substance: ALBUTEROL SULFATE
     Dosage: 3 ML, UNK
     Route: 045
  21. ALBUTEROL SULFATE. [Concomitant]
     Active Substance: ALBUTEROL SULFATE
     Dosage: 0.5 ML, UNK
     Route: 045
  22. LYRICA [Suspect]
     Active Substance: PREGABALIN
     Dosage: 50 MG, 2X/DAY (TAKE 1 CAPSULE BY MOUTH 2 TIMES A DAY, MAX DAILY 100 MG)
     Route: 048
     Dates: start: 20170105, end: 2017
  23. LYRICA [Suspect]
     Active Substance: PREGABALIN
     Dosage: 50 MG, 2X/DAY (TAKE 1 CAPSULE BY MOUTH 2 TIMES A DAY, MAX DAILY 100 MG)
     Route: 048
     Dates: start: 20170322, end: 2017
  24. METOPROLOL. [Concomitant]
     Active Substance: METOPROLOL
     Dosage: UNK
  25. LYRICA [Suspect]
     Active Substance: PREGABALIN
     Indication: DIABETIC NEUROPATHY
     Dosage: 50 MG, 2X/DAY (TAKE 1 CAPSULE BY MOUTH 2 TIMES A DAY, MAX DAILY 100 MG)
     Route: 048
     Dates: start: 20160205, end: 2016
  26. LYRICA [Suspect]
     Active Substance: PREGABALIN
     Dosage: 50 MG, 3X/DAY
  27. PRADAXA [Concomitant]
     Active Substance: DABIGATRAN ETEXILATE MESYLATE
     Dosage: 150 MG, 2X/DAY (TAKE 1 CAPSULE BY MOUTH 2 TIMES A DAY)
     Route: 048
  28. HUMALOG [Concomitant]
     Active Substance: INSULIN LISPRO
     Dosage: UNK (INSULIN PUMP)
     Route: 042
  29. BETAPACE [Concomitant]
     Active Substance: SOTALOL HYDROCHLORIDE
     Dosage: 120 MG, 2X/DAY (TAKE 1 TABLET BY MOUTH 2 TIMES A DAY)
     Route: 048

REACTIONS (2)
  - Lung disorder [Unknown]
  - Asbestosis [Unknown]
